FAERS Safety Report 8484666-5 (Version None)
Quarter: 2012Q3

REPORT INFORMATION
  Report Type: 
  Country: None (occurrence: None)
  Receive Date: 20120703
  Receipt Date: 20120410
  Transmission Date: 20120928
  Serious: No
  Sender: FDA-Public Use
  Company Number: US-TEVA-332759USA

PATIENT
  Sex: Female

DRUGS (1)
  1. NUVIGIL [Suspect]
     Indication: NARCOLEPSY
     Dosage: 250 MILLIGRAM;
     Route: 048
     Dates: start: 20120409

REACTIONS (4)
  - GLOSSODYNIA [None]
  - TONGUE DISORDER [None]
  - TONGUE BLISTERING [None]
  - FUNGAL INFECTION [None]
